FAERS Safety Report 22082424 (Version 1)
Quarter: 2023Q1

REPORT INFORMATION
  Report Type: Spontaneous
  Country: DE (occurrence: None)
  Receive Date: 20230310
  Receipt Date: 20230310
  Transmission Date: 20230418
  Serious: Yes (Disabling)
  Sender: FDA-Public Use
  Company Number: DE-ROCHE-3266080

PATIENT
  Age: 11 Year
  Sex: Female
  Weight: 30 kg

DRUGS (2)
  1. AVASTIN [Suspect]
     Active Substance: BEVACIZUMAB
     Indication: Papilloma
     Dosage: MOST RECENT DOSE WAS ADMINISTERED ON 10/FEB/2023
     Route: 065
     Dates: start: 20211220, end: 20230210
  2. AVASTIN [Suspect]
     Active Substance: BEVACIZUMAB
     Route: 065

REACTIONS (4)
  - Off label use [Unknown]
  - Weight gain poor [Not Recovered/Not Resolved]
  - Growth failure [Not Recovered/Not Resolved]
  - Respiratory papilloma [Unknown]
